FAERS Safety Report 6134214-X (Version None)
Quarter: 2009Q1

REPORT INFORMATION
  Report Type: 
  Country: None (occurrence: None)
  Receive Date: 20090325
  Receipt Date: 20090308
  Transmission Date: 20090719
  Serious: Yes (Hospitalization)
  Sender: FDA-Public Use
  Company Number: 2007S1000625

PATIENT
  Age: 61 Year
  Sex: Male
  Weight: 86.1834 kg

DRUGS (12)
  1. PHOSPHOSODA FLAVOR NOT SPECIFIED [Suspect]
     Indication: COLONOSCOPY
     Dosage: PO
     Route: 048
     Dates: start: 20030201, end: 20030201
  2. NITORSTAT [Concomitant]
  3. DAYPRO [Concomitant]
  4. CYTOTEC [Concomitant]
  5. ASPIRIN [Concomitant]
  6. HYDROCHLOROTHIAZIDE [Concomitant]
  7. ZESTRIL [Concomitant]
  8. HUMULIN R [Concomitant]
  9. METOPROLOL [Concomitant]
  10. LIPITOR [Concomitant]
  11. PENTOXIFYLLINE [Concomitant]
  12. DIAZEPAM [Concomitant]

REACTIONS (17)
  - ABDOMINAL DISTENSION [None]
  - ANXIETY [None]
  - CARDIAC DISORDER [None]
  - DIABETIC NEPHROPATHY [None]
  - DIALYSIS [None]
  - DISEASE COMPLICATION [None]
  - HICCUPS [None]
  - HYPERPARATHYROIDISM [None]
  - KIDNEY FIBROSIS [None]
  - MALAISE [None]
  - PAIN [None]
  - QUALITY OF LIFE DECREASED [None]
  - RENAL ARTERY OCCLUSION [None]
  - RENAL FAILURE ACUTE [None]
  - RENAL FAILURE CHRONIC [None]
  - RENAL TUBULAR DISORDER [None]
  - VOMITING [None]
